FAERS Safety Report 9408056 (Version 3)
Quarter: 2014Q3

REPORT INFORMATION
  Report Type: Spontaneous
  Country: JP (occurrence: None)
  Receive Date: 20130716
  Receipt Date: 20140708
  Transmission Date: 20150326
  Serious: Yes (Hospitalization, Other)
  Sender: FDA-Public Use
  Company Number: ABR_01011_2013

PATIENT
  Age: 55 Year
  Sex: Female
  Weight: 53.5 kg

DRUGS (2)
  1. TEMODAL [Concomitant]
     Active Substance: TEMOZOLOMIDE
  2. GLIADEL [Suspect]
     Active Substance: CARMUSTINE
     Indication: MALIGNANT GLIOMA
     Dosage: INTRACEREBRAL
     Dates: start: 20130411

REACTIONS (5)
  - Deep vein thrombosis [None]
  - Brain oedema [None]
  - Pneumocephalus [None]
  - Pulmonary embolism [None]
  - Cyst [None]

NARRATIVE: CASE EVENT DATE: 20130412
